FAERS Safety Report 7495265-6 (Version None)
Quarter: 2011Q2

REPORT INFORMATION
  Report Type: 
  Country: None (occurrence: None)
  Receive Date: 20110522
  Receipt Date: 20110517
  Transmission Date: 20111010
  Serious: Yes (Life-Threatening)
  Sender: FDA-Public Use
  Company Number: JP-PFIZER INC-2011100250

PATIENT
  Age: 62 Year
  Sex: Female
  Weight: 44 kg

DRUGS (8)
  1. ABILIFY [Concomitant]
     Indication: SCHIZOPHRENIA
     Dosage: 3 MG, 1X/DAY
     Dates: start: 20110211
  2. FEMARA [Concomitant]
     Indication: BREAST CANCER
     Dosage: 2.5 MG, 1X/DAY
     Dates: start: 20100521
  3. U-PAN [Concomitant]
     Indication: ANXIETY
     Dosage: 1 MG, 1X/DAY
     Dates: start: 20100903
  4. ONE-ALPHA [Concomitant]
     Indication: OSTEOPOROSIS
     Dosage: 0.5 UG, 1X/DAY
     Dates: start: 20100521
  5. U-PAN [Concomitant]
     Indication: DEPRESSION
  6. BENZALIN [Concomitant]
     Indication: INSOMNIA
     Dosage: 5 MG, 1X/DAY
     Dates: start: 20100521, end: 20110408
  7. ZOLOFT [Suspect]
     Indication: DEPRESSION SUICIDAL
     Dosage: 25 MG, 1X/DAY
     Route: 048
     Dates: start: 20101224, end: 20101225
  8. ZOLOFT [Suspect]
     Dosage: 25 MG, 1X/DAY
     Route: 048
     Dates: start: 20110505, end: 20110506

REACTIONS (6)
  - BRADYCARDIA [None]
  - DIARRHOEA [None]
  - NAUSEA [None]
  - VOMITING [None]
  - ALTERED STATE OF CONSCIOUSNESS [None]
  - BLOOD PRESSURE IMMEASURABLE [None]
